FAERS Safety Report 6664375-5 (Version None)
Quarter: 2010Q2

REPORT INFORMATION
  Report Type: 
  Country: None (occurrence: None)
  Receive Date: 20100401
  Receipt Date: 20100329
  Transmission Date: 20101027
  Serious: Yes (Death, Hospitalization)
  Sender: FDA-Public Use
  Company Number: US-CELGENEUS-163-C5013-10031621

PATIENT
  Sex: Female

DRUGS (36)
  1. CC-5013 [Suspect]
     Indication: MULTIPLE MYELOMA
     Route: 048
     Dates: start: 20100310, end: 20100316
  2. CC-5013 [Suspect]
     Route: 048
     Dates: start: 20090311
  3. DEXAMETHASONE ACETATE [Suspect]
     Indication: MULTIPLE MYELOMA
     Route: 065
     Dates: start: 20100310, end: 20100310
  4. DEXAMETHASONE ACETATE [Suspect]
     Route: 065
     Dates: start: 20090311
  5. DEXAMETHASONE ACETATE [Suspect]
     Route: 065
  6. DEXAMETHASONE ACETATE [Suspect]
     Route: 065
  7. MAGNESIUM [Concomitant]
     Indication: ELECTROLYTE IMBALANCE
     Route: 051
     Dates: start: 20100305
  8. CARDIZEM [Concomitant]
     Indication: ELECTROLYTE IMBALANCE
     Route: 051
     Dates: start: 20100305
  9. OMEPRAZOLE [Concomitant]
     Route: 048
     Dates: start: 20081208
  10. LOTREL [Concomitant]
     Indication: HYPERTENSION
     Dosage: 10/20 MG
     Route: 048
     Dates: start: 20081208, end: 20090401
  11. CALCIUM [Concomitant]
     Indication: MINERAL SUPPLEMENTATION
     Route: 048
     Dates: start: 20081208
  12. TRIAMTERENE [Concomitant]
     Indication: HYPERTENSION
     Dosage: 37.5/25 MG
     Route: 048
     Dates: start: 20081203
  13. FISH OIL [Concomitant]
     Route: 048
     Dates: start: 20081203
  14. COQ10 [Concomitant]
     Route: 048
     Dates: start: 20081203
  15. MULTI-VITAMINS [Concomitant]
     Indication: VITAMIN SUPPLEMENTATION
     Route: 048
     Dates: start: 20090228
  16. ZOMETA [Concomitant]
     Indication: OSTEOPOROSIS
     Route: 051
     Dates: start: 20090311
  17. SOTALOL HCL [Concomitant]
     Indication: ARRHYTHMIA
     Route: 048
     Dates: start: 20090624
  18. DYAZIDE [Concomitant]
     Indication: HYPERTENSION
     Route: 048
     Dates: start: 20090624
  19. COMPAZINE [Concomitant]
     Indication: NAUSEA
     Route: 048
     Dates: start: 20090401, end: 20090418
  20. IMODIUM A-D [Concomitant]
     Dosage: 1-2 TABS
     Route: 048
     Dates: start: 20090331, end: 20090910
  21. DARVOCET [Concomitant]
     Indication: BACK PAIN
     Route: 048
     Dates: start: 20090311
  22. PREDNISONE TAB [Concomitant]
     Indication: DRUG USE FOR UNKNOWN INDICATION
     Route: 048
     Dates: start: 20090510
  23. ATIVAN [Concomitant]
     Indication: ANXIETY
     Route: 048
     Dates: start: 20090408
  24. ASPIRIN [Concomitant]
     Route: 048
     Dates: start: 20090311
  25. LOVENOX [Concomitant]
     Indication: DRUG USE FOR UNKNOWN INDICATION
     Route: 065
     Dates: start: 20100301
  26. K-DUR [Concomitant]
     Indication: DRUG USE FOR UNKNOWN INDICATION
     Route: 065
  27. ALLOPURINOL [Concomitant]
     Indication: DRUG USE FOR UNKNOWN INDICATION
     Route: 065
  28. GLIMEPIRIDE [Concomitant]
     Indication: DRUG USE FOR UNKNOWN INDICATION
     Route: 065
  29. VITAMIN D [Concomitant]
     Indication: DRUG USE FOR UNKNOWN INDICATION
     Route: 065
  30. BYETTA [Concomitant]
     Indication: DRUG USE FOR UNKNOWN INDICATION
     Route: 065
  31. ROCEPHIN [Concomitant]
     Route: 051
     Dates: start: 20100316
  32. NEUPOGEN [Concomitant]
     Indication: DRUG USE FOR UNKNOWN INDICATION
     Route: 065
  33. OXYGEN [Concomitant]
     Indication: DRUG USE FOR UNKNOWN INDICATION
     Route: 055
     Dates: start: 20100318
  34. DOPAMINE HCL [Concomitant]
     Indication: DRUG USE FOR UNKNOWN INDICATION
     Dates: start: 20100318
  35. DIGOXIN [Concomitant]
     Indication: DRUG USE FOR UNKNOWN INDICATION
     Route: 051
     Dates: start: 20100318
  36. DOBUTAMINE [Concomitant]
     Indication: DRUG USE FOR UNKNOWN INDICATION
     Route: 051
     Dates: start: 20100318

REACTIONS (2)
  - ATRIAL FIBRILLATION [None]
  - FEBRILE NEUTROPENIA [None]
